FAERS Safety Report 9018840 (Version 1)
Quarter: 2013Q1

REPORT INFORMATION
  Report Type: Spontaneous
  Country: US (occurrence: US)
  Receive Date: 20130118
  Receipt Date: 20130118
  Transmission Date: 20140127
  Serious: No
  Sender: FDA-Public Use
  Company Number: US-TEVA-381356USA

PATIENT
  Age: 21 Year
  Sex: Female
  Weight: 113.5 kg

DRUGS (4)
  1. PLAN B ONE-STEP [Suspect]
     Indication: POST COITAL CONTRACEPTION
     Dosage: 1.5 MILLIGRAM DAILY;
     Route: 048
     Dates: start: 201209, end: 201209
  2. PLAN B ONE-STEP [Suspect]
     Dosage: 1.5 MILLIGRAM DAILY;
     Route: 048
     Dates: start: 201209, end: 201209
  3. AUGMENTIN [Concomitant]
     Indication: SINUSITIS
     Dates: start: 20121201
  4. TORADOL [Concomitant]
     Indication: PAIN
     Dates: start: 20121201

REACTIONS (1)
  - Menstruation delayed [Not Recovered/Not Resolved]
